FAERS Safety Report 6714894-8 (Version None)
Quarter: 2010Q2

REPORT INFORMATION
  Report Type: 
  Country: None (occurrence: None)
  Receive Date: 20100507
  Receipt Date: 20100426
  Transmission Date: 20101027
  Serious: Yes (Other)
  Sender: FDA-Public Use
  Company Number: US-CELGENEUS-163-21880-10042307

PATIENT
  Sex: Female

DRUGS (3)
  1. REVLIMID [Suspect]
     Indication: MYELODYSPLASTIC SYNDROME
     Route: 048
     Dates: start: 20091014
  2. REVLIMID [Suspect]
     Route: 048
     Dates: start: 20071001, end: 20090101
  3. REVLIMID [Suspect]
     Route: 048
     Dates: start: 20090301

REACTIONS (1)
  - METASTATIC MALIGNANT MELANOMA [None]
